FAERS Safety Report 20115180 (Version 1)
Quarter: 2021Q4

REPORT INFORMATION
  Report Type: Spontaneous
  Country: US (occurrence: US)
  Receive Date: 20211125
  Receipt Date: 20211125
  Transmission Date: 20220304
  Serious: Yes (Hospitalization, Other)
  Sender: FDA-Public Use
  Company Number: US-BIOVITRUM-2021US11055

PATIENT
  Sex: Male

DRUGS (7)
  1. SYNAGIS [Suspect]
     Active Substance: PALIVIZUMAB
     Indication: Antiviral prophylaxis
     Route: 030
     Dates: start: 202108
  2. SYNAGIS [Suspect]
     Active Substance: PALIVIZUMAB
     Indication: Dependence on respirator
  3. SYNAGIS [Suspect]
     Active Substance: PALIVIZUMAB
     Indication: Chronic respiratory disease
  4. SYNAGIS [Suspect]
     Active Substance: PALIVIZUMAB
     Indication: Tracheal disorder
  5. SYNAGIS [Suspect]
     Active Substance: PALIVIZUMAB
     Indication: Chronic respiratory failure
  6. SYNAGIS [Suspect]
     Active Substance: PALIVIZUMAB
     Indication: Bronchopulmonary disease
  7. SYNAGIS [Suspect]
     Active Substance: PALIVIZUMAB
     Indication: Persistent left superior vena cava

REACTIONS (1)
  - Cardiac arrest [Unknown]
